FAERS Safety Report 5032177-1 (Version None)
Quarter: 2006Q2

REPORT INFORMATION
  Report Type: 
  Country: None (occurrence: None)
  Receive Date: 20060619
  Receipt Date: 20060608
  Transmission Date: 20061013
  Serious: Yes (Hospitalization, Other)
  Sender: FDA-Public Use
  Company Number: FRWYE035825FEB03

PATIENT
  Age: 32 Year
  Sex: Female

DRUGS (12)
  1. SIROLIMUS (SIROLIMUS, TABLET, 0) [Suspect]
     Indication: PROPHYLAXIS AGAINST TRANSPLANT REJECTION
     Dosage: SEE IMAGE
     Route: 048
     Dates: start: 20021023, end: 20021023
  2. SIROLIMUS (SIROLIMUS, TABLET, 0) [Suspect]
     Indication: PROPHYLAXIS AGAINST TRANSPLANT REJECTION
     Dosage: SEE IMAGE
     Route: 048
     Dates: start: 20021024, end: 20021108
  3. SIROLIMUS (SIROLIMUS, TABLET, 0) [Suspect]
     Indication: PROPHYLAXIS AGAINST TRANSPLANT REJECTION
     Dosage: SEE IMAGE
     Route: 048
     Dates: start: 20021109
  4. CELLCEPT [Concomitant]
  5. SOLUPRED (PREDNISOLONE SODIUM SULFOBENZOATE) [Concomitant]
  6. SOLUPRED (PREDNISOLONE SODIUM SULFOBENZOATE) [Concomitant]
  7. BACTRIM [Concomitant]
  8. ZOVIRAX [Concomitant]
  9. FERROUS SULFATE TAB [Concomitant]
  10. PHOSPHONEUROS (CALCIUM PHOSPHATE DIBASIC/MAGNESIUM GLYCEROPHOSPHATE/PH [Concomitant]
  11. SODIUM BICARBONATE IN PLASTIC CONTAINER [Concomitant]
  12. TAHOR (ATORVASTATIN) [Concomitant]

REACTIONS (2)
  - IMPAIRED HEALING [None]
  - LYMPHORRHOEA [None]
